FAERS Safety Report 12155407 (Version 2)
Quarter: 2016Q1

REPORT INFORMATION
  Report Type: Spontaneous
  Country: FR (occurrence: FR)
  Receive Date: 20160307
  Receipt Date: 20160321
  Transmission Date: 20160526
  Serious: Yes (Hospitalization, Other)
  Sender: FDA-Public Use
  Company Number: FR-AMGEN-FRASP2016026268

PATIENT
  Age: 59 Year
  Sex: Male
  Weight: 63 kg

DRUGS (4)
  1. CALCIT                             /00514701/ [Concomitant]
     Dosage: 1 TABLET, QD
  2. XGEVA [Suspect]
     Active Substance: DENOSUMAB
     Indication: PROSTATE CANCER METASTATIC
     Dosage: 120 MG, Q4WK
     Route: 058
     Dates: start: 201501
  3. TAXOTERE [Concomitant]
     Active Substance: DOCETAXEL
  4. FIRMAGON [Concomitant]
     Active Substance: DEGARELIX ACETATE
     Dosage: 80  QMO

REACTIONS (5)
  - Hyperkeratosis [Not Recovered/Not Resolved]
  - Bone disorder [Not Recovered/Not Resolved]
  - Femur fracture [Recovering/Resolving]
  - Pain [Not Recovered/Not Resolved]
  - Fall [Unknown]

NARRATIVE: CASE EVENT DATE: 20160113
